FAERS Safety Report 7765561-3 (Version None)
Quarter: 2011Q3

REPORT INFORMATION
  Report Type: 
  Country: None (occurrence: None)
  Receive Date: 20110921
  Receipt Date: 20110908
  Transmission Date: 20111222
  Serious: Yes (Other)
  Sender: FDA-Public Use
  Company Number: PHHO2011US01799

PATIENT
  Sex: Female
  Weight: 78.5 kg

DRUGS (2)
  1. NEORAL [Concomitant]
     Indication: HEART TRANSPLANT
     Dosage: 75 MG, BID
     Route: 048
     Dates: start: 20070611
  2. ZORTRESS [Suspect]
     Indication: HEART TRANSPLANT
     Dosage: 0.75 MG, BID
     Route: 048
     Dates: start: 20060906, end: 20110125

REACTIONS (2)
  - MATERNAL EXPOSURE DURING PREGNANCY [None]
  - ABORTION SPONTANEOUS [None]
